FAERS Safety Report 8774801 (Version 3)
Quarter: 2015Q1

REPORT INFORMATION
  Report Type: Spontaneous
  Country: US (occurrence: US)
  Receive Date: 20120910
  Receipt Date: 20150107
  Transmission Date: 20150721
  Serious: No
  Sender: FDA-Public Use
  Company Number: US-009507513-1209USA002217

PATIENT
  Sex: Male
  Weight: 86.62 kg

DRUGS (2)
  1. PROPECIA [Suspect]
     Active Substance: FINASTERIDE
     Dosage: 1 MG, QD
     Route: 048
     Dates: end: 2011
  2. PROPECIA [Suspect]
     Active Substance: FINASTERIDE
     Indication: ANDROGENETIC ALOPECIA
     Dosage: 1/2 TAB X2WKS THEN 1MG QD
     Route: 048
     Dates: end: 20120202

REACTIONS (13)
  - Blood heavy metal increased [Unknown]
  - Inappropriate schedule of drug administration [Unknown]
  - Cognitive disorder [Not Recovered/Not Resolved]
  - Hypercholesterolaemia [Unknown]
  - Sexual dysfunction [Not Recovered/Not Resolved]
  - Loss of libido [Unknown]
  - Lipids increased [Unknown]
  - Androgen deficiency [Unknown]
  - Wrong technique in drug usage process [Unknown]
  - Blood testosterone decreased [Unknown]
  - Endocrine disorder [Unknown]
  - Stress [Unknown]
  - Erectile dysfunction [Unknown]

NARRATIVE: CASE EVENT DATE: 200906
